FAERS Safety Report 20743170 (Version 3)
Quarter: 2022Q2

REPORT INFORMATION
  Report Type: Report from Study
  Country: US (occurrence: US)
  Receive Date: 20220425
  Receipt Date: 20220521
  Transmission Date: 20220720
  Serious: Yes (Hospitalization, Other)
  Sender: FDA-Public Use
  Company Number: US-NOVARTISPH-NVSC2022US090828

PATIENT
  Sex: Male

DRUGS (1)
  1. ENTRESTO [Suspect]
     Active Substance: SACUBITRIL\VALSARTAN
     Indication: Product used for unknown indication
     Dosage: 1 DOSAGE FORM, BID
     Route: 065
     Dates: start: 202011

REACTIONS (11)
  - Myocardial infarction [Recovering/Resolving]
  - Atrial fibrillation [Recovering/Resolving]
  - Renal failure [Recovered/Resolved]
  - Deafness [Not Recovered/Not Resolved]
  - Tongue biting [Unknown]
  - Vision blurred [Not Recovered/Not Resolved]
  - Amnesia [Unknown]
  - Nervousness [Unknown]
  - Blood potassium decreased [Unknown]
  - Fatigue [Recovering/Resolving]
  - Accident [Unknown]

NARRATIVE: CASE EVENT DATE: 20210101
